FAERS Safety Report 6617075-1 (Version None)
Quarter: 2010Q1

REPORT INFORMATION
  Report Type: 
  Country: None (occurrence: None)
  Receive Date: 20100307
  Receipt Date: 20100227
  Transmission Date: 20100710
  Serious: Yes (Hospitalization)
  Sender: FDA-Public Use
  Company Number: US-BRISTOL-MYERS SQUIBB COMPANY-14995724

PATIENT
  Age: 69 Year
  Sex: Female
  Weight: 60 kg

DRUGS (3)
  1. SPRYCEL [Suspect]
     Indication: HEPATIC NEOPLASM MALIGNANT
     Dosage: MOST RECENT DOSE-01FEB10. TOTAL ADMINSTERED FOR COURSE PRIOR TO EVENT-2800 MG
     Route: 048
     Dates: start: 20100105
  2. TYLENOL W/ CODEINE [Concomitant]
  3. ATENOLOL [Concomitant]

REACTIONS (3)
  - CONFUSIONAL STATE [None]
  - DEHYDRATION [None]
  - FATIGUE [None]
